FAERS Safety Report 9302783 (Version 1)
Quarter: 2013Q2

REPORT INFORMATION
  Report Type: Spontaneous
  Country: AT (occurrence: AT)
  Receive Date: 20130522
  Receipt Date: 20130522
  Transmission Date: 20140414
  Serious: Yes (Other)
  Sender: FDA-Public Use
  Company Number: AT-TEVA-404971ISR

PATIENT
  Age: 64 Year
  Sex: Female

DRUGS (10)
  1. FURON /00032601/ [Suspect]
     Indication: DEHYDRATION
     Dates: start: 2011, end: 201111
  2. FURON /00032601/ [Suspect]
     Indication: POLYURIA
  3. BETAHISTITINE HYDROCHLORIDE [Concomitant]
  4. PREDNISOLON [Concomitant]
  5. TRITTICO [Concomitant]
  6. CYMBALTE [Concomitant]
  7. RESOCHIN [Concomitant]
  8. THROMBO ASS [Concomitant]
  9. PANTROPRAZOLE SODIUM SESQUIHYDRATE [Concomitant]
  10. SIMVASTATIN [Concomitant]

REACTIONS (1)
  - Keratitis [Unknown]
